FAERS Safety Report 7467058-7 (Version None)
Quarter: 2011Q2

REPORT INFORMATION
  Report Type: 
  Country: None (occurrence: None)
  Receive Date: 20110509
  Receipt Date: 20110218
  Transmission Date: 20111010
  Serious: No
  Sender: FDA-Public Use
  Company Number: US-SANOFI-AVENTIS-2011SA011243

PATIENT
  Sex: Male

DRUGS (1)
  1. APIDRA [Suspect]
     Dosage: TAKE VIA PUMP AND FREQUENCY IS CONTINUOUS.
     Route: 058
     Dates: start: 20110216

REACTIONS (1)
  - DYSGEUSIA [None]
